FAERS Safety Report 5121009-9 (Version None)
Quarter: 2006Q4

REPORT INFORMATION
  Report Type: 
  Country: None (occurrence: None)
  Receive Date: 20061002
  Receipt Date: 20060915
  Transmission Date: 20070319
  Serious: Yes (Hospitalization)
  Sender: FDA-Public Use
  Company Number: WAES 0609USA04132

PATIENT
  Age: 52 Year
  Sex: Male

DRUGS (15)
  1. NOROXIN [Suspect]
     Dosage: 400 MG BID PO
     Route: 048
     Dates: start: 20060408, end: 20060408
  2. LINEZOLID [Suspect]
     Dosage: 600 MG/BID IV
     Route: 042
     Dates: start: 20060314, end: 20060320
  3. ATEN [Concomitant]
  4. BECOZYME [Concomitant]
  5. EPREX [Concomitant]
  6. FOLVITE [Concomitant]
  7. IMODIUM [Concomitant]
  8. SANDOCAL [Concomitant]
  9. AMLODIPINE BESYLATE [Concomitant]
  10. METOCLOPRAMIDE [Concomitant]
  11. NIFEDIPINE [Concomitant]
  12. PANTOPRAZOLE SODIUM [Concomitant]
  13. PHENYTOIN [Concomitant]
  14. SERTRALINE HCL [Concomitant]
  15. ZOLPIDEM TARTRATE [Concomitant]

REACTIONS (12)
  - BLOOD PRESSURE INCREASED [None]
  - DISORIENTATION [None]
  - FALL [None]
  - FOAMING AT MOUTH [None]
  - HAEMORRHAGE [None]
  - HEAD INJURY [None]
  - LACERATION [None]
  - METABOLIC ENCEPHALOPATHY [None]
  - MOUTH HAEMORRHAGE [None]
  - OPEN WOUND [None]
  - PROCEDURAL COMPLICATION [None]
  - STAPHYLOCOCCAL INFECTION [None]
